FAERS Safety Report 6593819-2 (Version None)
Quarter: 2010Q1

REPORT INFORMATION
  Report Type: 
  Country: None (occurrence: None)
  Receive Date: 20100212
  Receipt Date: 20100129
  Transmission Date: 20100710
  Serious: Yes (Congenital Anomaly)
  Sender: FDA-Public Use
  Company Number: B0629804A

PATIENT
  Age: 1 Day
  Sex: Female

DRUGS (2)
  1. LAMOTRIGINE [Suspect]
     Indication: EPILEPSY
     Dosage: 200 MG PER DAY/ TRANSPLACENTARY
     Route: 064
  2. TOPIRAMATE [Suspect]
     Indication: EPILEPSY
     Dosage: 250 MG PER DAY/ TRANSPLACENTARY
     Route: 064

REACTIONS (3)
  - HERNIA CONGENITAL [None]
  - HYDROCELE [None]
  - MATERNAL DRUGS AFFECTING FOETUS [None]
